FAERS Safety Report 7971259-9 (Version None)
Quarter: 2011Q4

REPORT INFORMATION
  Report Type: 
  Country: None (occurrence: None)
  Receive Date: 20111212
  Receipt Date: 20101115
  Transmission Date: 20120403
  Serious: No
  Sender: FDA-Public Use
  Company Number: US-BRISTOL-MYERS SQUIBB COMPANY-15392236

PATIENT
  Age: 5 Decade
  Sex: Female

DRUGS (2)
  1. XELODA [Suspect]
  2. IXEMPRA KIT [Suspect]
     Dosage: DOSE WAS REDUCED AND THEN DISCONTINUED,TOTALLY 4 DOSES RECEIVED.

REACTIONS (1)
  - NEUROPATHY PERIPHERAL [None]
